FAERS Safety Report 10475782 (Version 1)
Quarter: 2014Q3

REPORT INFORMATION
  Report Type: Spontaneous
  Country: US (occurrence: US)
  Receive Date: 20140925
  Receipt Date: 20140925
  Transmission Date: 20150326
  Serious: No
  Sender: FDA-Public Use
  Company Number: US-GLAXOSMITHKLINE-A1044781A

PATIENT
  Age: 66 Year
  Sex: Male

DRUGS (1)
  1. COREG [Suspect]
     Active Substance: CARVEDILOL
     Indication: CARDIOVASCULAR DISORDER
     Dosage: 12.5MG UNKNOWN
     Route: 065
     Dates: start: 20090210

REACTIONS (2)
  - Vasodilatation [Unknown]
  - Alopecia [Unknown]
